FAERS Safety Report 11999975 (Version 2)
Quarter: 2016Q1

REPORT INFORMATION
  Report Type: Spontaneous
  Country: US (occurrence: US)
  Receive Date: 20160204
  Receipt Date: 20160215
  Transmission Date: 20160526
  Serious: Yes (Other)
  Sender: FDA-Public Use
  Company Number: US-TEVA-630851ACC

PATIENT
  Sex: Female
  Weight: 60.38 kg

DRUGS (2)
  1. PARAGARD T 380A [Suspect]
     Active Substance: COPPER
     Indication: CONTRACEPTION
     Dates: start: 20160118, end: 20160121
  2. PARAGARD T 380A [Suspect]
     Active Substance: COPPER
     Dates: start: 20160121

REACTIONS (3)
  - Device dislocation [Recovered/Resolved]
  - Abdominal pain [Unknown]
  - Exposure during breast feeding [Unknown]

NARRATIVE: CASE EVENT DATE: 20160121
